FAERS Safety Report 4919101-4 (Version None)
Quarter: 2006Q1

REPORT INFORMATION
  Report Type: 
  Country: None (occurrence: None)
  Receive Date: 20060216
  Receipt Date: 20060207
  Transmission Date: 20060701
  Serious: Yes (Hospitalization)
  Sender: FDA-Public Use
  Company Number: 2006PV008256

PATIENT
  Age: 67 Year
  Sex: Female
  Weight: 98.8842 kg

DRUGS (19)
  1. BYETTA [Suspect]
     Indication: DIABETES MELLITUS NON-INSULIN-DEPENDENT
     Dosage: 5 MCG;BID;SC
     Route: 058
     Dates: start: 20060126
  2. NOVOLOG [Concomitant]
  3. VYTORIN [Concomitant]
  4. OGEN [Concomitant]
  5. ACTONEL [Concomitant]
  6. TEGRETOL [Concomitant]
  7. VICODIN [Concomitant]
  8. ALTACE [Concomitant]
  9. LANTUS [Concomitant]
  10. MAXZIDE [Concomitant]
  11. FIBERCON [Concomitant]
  12. ZYRTEC [Concomitant]
  13. TOPROL-XL [Concomitant]
  14. AMBIEN [Concomitant]
  15. VITAMIN B6 [Concomitant]
  16. ASCORBIC ACID [Concomitant]
  17. FOLIC ACID [Concomitant]
  18. B12 ^RECIP^ [Concomitant]
  19. ADVAIR DISKUS 100/50 [Concomitant]

REACTIONS (9)
  - BLOOD CREATININE INCREASED [None]
  - BLOOD POTASSIUM DECREASED [None]
  - DEHYDRATION [None]
  - DIARRHOEA [None]
  - HYPERCALCAEMIA [None]
  - MALAISE [None]
  - NAUSEA [None]
  - VOMITING [None]
  - WEIGHT DECREASED [None]
